FAERS Safety Report 14186830 (Version 1)
Quarter: 2017Q4

REPORT INFORMATION
  Report Type: Not Available
  Country: US (occurrence: US)
  Receive Date: 20171112
  Receipt Date: 20171112
  Transmission Date: 20180321
  Serious: Yes (Disabling)
  Sender: FDA-Public Use
  Company Number: None

PATIENT
  Age: 40 Year
  Sex: Male
  Weight: 98.55 kg

DRUGS (1)
  1. OMEPRAZOLE. [Suspect]
     Active Substance: OMEPRAZOLE
     Indication: GASTROOESOPHAGEAL REFLUX DISEASE
     Dosage: ?          QUANTITY:20 CAPSULE(S);?ORAL
     Route: 048
     Dates: start: 20171013, end: 20171016

REACTIONS (11)
  - Gastrointestinal pain [None]
  - Multi-organ disorder [None]
  - Renal pain [None]
  - Feeling drunk [None]
  - Renal disorder [None]
  - Gait disturbance [None]
  - Therapy cessation [None]
  - Hepatic pain [None]
  - Dizziness [None]
  - Liver disorder [None]
  - Gastric disorder [None]

NARRATIVE: CASE EVENT DATE: 20171020
